FAERS Safety Report 7380049-X (Version None)
Quarter: 2011Q1

REPORT INFORMATION
  Report Type: 
  Country: None (occurrence: None)
  Receive Date: 20110329
  Receipt Date: 20110322
  Transmission Date: 20110831
  Serious: Yes (Other)
  Sender: FDA-Public Use
  Company Number: US-JNJFOC-20100804734

PATIENT
  Sex: Female

DRUGS (4)
  1. LEVAQUIN [Suspect]
     Route: 042
  2. LEVAQUIN [Suspect]
     Indication: FLANK PAIN
     Route: 042
  3. LEVAQUIN [Suspect]
     Indication: ABDOMINAL PAIN
     Route: 048
  4. LEVAQUIN [Suspect]
     Indication: KIDNEY INFECTION
     Route: 048

REACTIONS (2)
  - MUSCULOSKELETAL DISORDER [None]
  - TENDON RUPTURE [None]
